FAERS Safety Report 10800731 (Version 2)
Quarter: 2015Q1

REPORT INFORMATION
  Report Type: Spontaneous
  Country: US (occurrence: US)
  Receive Date: 20150216
  Receipt Date: 20150216
  Transmission Date: 20150721
  Serious: No
  Sender: FDA-Public Use
  Company Number: US-ALLERGAN-1500025US

PATIENT
  Sex: Male

DRUGS (2)
  1. RESTASIS [Suspect]
     Active Substance: CYCLOSPORINE
     Indication: DRY EYE
     Dosage: ONE VIAL TWICE A DAY
     Dates: start: 20141211
  2. SYSTANE BALANCE [Concomitant]
     Active Substance: PROPYLENE GLYCOL
     Dosage: UNK

REACTIONS (10)
  - Metamorphopsia [Unknown]
  - Eye pain [Recovered/Resolved]
  - Lacrimation increased [Unknown]
  - Eye pain [Unknown]
  - Paraesthesia [Recovered/Resolved]
  - Blepharitis [Recovered/Resolved]
  - Incorrect dose administered [Unknown]
  - Eye irritation [Recovered/Resolved]
  - Eye discharge [Unknown]
  - Foreign body sensation in eyes [Unknown]
